FAERS Safety Report 5155844-8 (Version None)
Quarter: 2006Q4

REPORT INFORMATION
  Report Type: 
  Country: None (occurrence: None)
  Receive Date: 20061122
  Receipt Date: 20060830
  Transmission Date: 20070319
  Serious: Yes (Hospitalization, Other)
  Sender: FDA-Public Use
  Company Number: JP-SP-2006-02418

PATIENT
  Age: 71 Year
  Sex: Female

DRUGS (7)
  1. IMMUCYST [Suspect]
     Indication: BLADDER CANCER
     Route: 065
     Dates: start: 20060628, end: 20060809
  2. IMMUCYST [Suspect]
     Route: 065
     Dates: start: 20060628, end: 20060809
  3. IMMUCYST [Suspect]
     Route: 065
     Dates: start: 20060628, end: 20060809
  4. IMMUCYST [Suspect]
     Route: 065
     Dates: start: 20060628, end: 20060809
  5. IMMUCYST [Suspect]
     Route: 065
     Dates: start: 20060628, end: 20060809
  6. DICLOFENAC SODIUM [Concomitant]
     Dates: start: 20060719, end: 20060922
  7. PROPIVERINE HYDROCHLORIDE [Concomitant]
     Dates: start: 20060901, end: 20060921

REACTIONS (7)
  - ARTHRALGIA [None]
  - BLADDER PAIN [None]
  - CYSTITIS [None]
  - HYPONATRAEMIA [None]
  - MALAISE [None]
  - PYREXIA [None]
  - RESTLESSNESS [None]
